FAERS Safety Report 25933778 (Version 1)
Quarter: 2025Q4

REPORT INFORMATION
  Report Type: Spontaneous
  Country: US (occurrence: US)
  Receive Date: 20251017
  Receipt Date: 20251017
  Transmission Date: 20260117
  Serious: No
  Sender: NEUROCRINE BIOSCIENCES
  Company Number: US-NEUROCRINE BIOSCIENCES INC.-2025NBI13394

PATIENT
  Age: 57 Year
  Sex: Female

DRUGS (2)
  1. INGREZZA [Suspect]
     Active Substance: VALBENAZINE DITOSYLATE
     Indication: Tardive dyskinesia
     Dosage: 60 MILLIGRAM
     Route: 065
  2. BUPROPION [Concomitant]
     Active Substance: BUPROPION
     Indication: Affective disorder

REACTIONS (1)
  - Hepatic steatosis [Not Recovered/Not Resolved]
